FAERS Safety Report 6242560-4 (Version None)
Quarter: 2009Q2

REPORT INFORMATION
  Report Type: 
  Country: None (occurrence: None)
  Receive Date: 20090622
  Receipt Date: 20090622
  Transmission Date: 20091009
  Serious: No
  Sender: FDA-Public Use
  Company Number: None

PATIENT
  Sex: Female
  Weight: 57.1532 kg

DRUGS (1)
  1. ZICAM COLD REMEDY ? ? [Suspect]
     Indication: SINUS CONGESTION
     Dosage: 1 DOSE 1 TIME NASAL
     Route: 045
     Dates: start: 20040601

REACTIONS (5)
  - AGEUSIA [None]
  - ANOSMIA [None]
  - DRUG EXPOSURE DURING PREGNANCY [None]
  - NASAL DISCOMFORT [None]
  - NERVE INJURY [None]
